FAERS Safety Report 5328586-3 (Version None)
Quarter: 2007Q2

REPORT INFORMATION
  Report Type: 
  Country: None (occurrence: None)
  Receive Date: 20070518
  Receipt Date: 20070509
  Transmission Date: 20071010
  Serious: Yes (Other)
  Sender: FDA-Public Use
  Company Number: US-JNJFOC-20070502439

PATIENT
  Sex: Female

DRUGS (2)
  1. REMICADE [Suspect]
     Indication: DRUG USE FOR UNKNOWN INDICATION
  2. MERCAPTOPURINE [Suspect]
     Indication: DRUG USE FOR UNKNOWN INDICATION
     Route: 048

REACTIONS (4)
  - DRUG EXPOSURE DURING PREGNANCY [None]
  - INTRA-UTERINE DEATH [None]
  - PERICARDIAL EFFUSION [None]
  - PERICARDITIS [None]
